FAERS Safety Report 5471088-4 (Version None)
Quarter: 2007Q3

REPORT INFORMATION
  Report Type: 
  Country: None (occurrence: None)
  Receive Date: 20070928
  Receipt Date: 20070926
  Transmission Date: 20080115
  Serious: Yes (Life-Threatening)
  Sender: FDA-Public Use
  Company Number: DE-ASTRAZENECA-2007PK02003

PATIENT
  Age: 29165 Day
  Sex: Female
  Weight: 66 kg

DRUGS (4)
  1. SYMBICORT [Suspect]
     Indication: ASTHMA
     Dosage: ONE IH BID
     Route: 055
     Dates: start: 20070612, end: 20070815
  2. SYMBICORT [Suspect]
     Indication: EMPHYSEMA
     Dosage: ONE IH BID
     Route: 055
     Dates: start: 20070612, end: 20070815
  3. SPIRIVA [Concomitant]
     Indication: ASTHMA
     Dosage: ONE IH DAILY
     Route: 055
     Dates: start: 20070612, end: 20070815
  4. SPIRIVA [Concomitant]
     Indication: EMPHYSEMA
     Dosage: ONE IH DAILY
     Route: 055
     Dates: start: 20070612, end: 20070815

REACTIONS (5)
  - DRY MOUTH [None]
  - PRURITUS [None]
  - TONGUE COATED [None]
  - VOMITING [None]
  - WEIGHT DECREASED [None]
